FAERS Safety Report 9270484 (Version 1)
Quarter: 2013Q2

REPORT INFORMATION
  Report Type: Spontaneous
  Country: US (occurrence: US)
  Receive Date: 20130503
  Receipt Date: 20130503
  Transmission Date: 20140414
  Serious: No
  Sender: FDA-Public Use
  Company Number: US-009507513-1305USA000702

PATIENT
  Sex: Male

DRUGS (2)
  1. DULERA [Suspect]
     Indication: ASTHMA
     Dosage: 2 PUFFS BID
     Route: 048
     Dates: start: 20130317
  2. COMBIVENT [Concomitant]

REACTIONS (2)
  - Underdose [Unknown]
  - Product quality issue [Unknown]
